FAERS Safety Report 9370745 (Version 1)
Quarter: 2013Q2

REPORT INFORMATION
  Report Type: Spontaneous
  Country: CA (occurrence: CA)
  Receive Date: 20130626
  Receipt Date: 20130626
  Transmission Date: 20140414
  Serious: Yes (Other)
  Sender: FDA-Public Use
  Company Number: CA-TEVA-415390USA

PATIENT
  Age: 71 Year
  Sex: Female
  Weight: 90.8 kg

DRUGS (15)
  1. ENALAPRIL [Suspect]
     Dosage: 20 MILLIGRAM DAILY;
     Route: 065
  2. ALDACTONE [Concomitant]
  3. AMITRIPTYLINE [Concomitant]
  4. ASA [Concomitant]
  5. BISOPROLOL [Concomitant]
  6. EZETROL [Concomitant]
  7. GLYBURIDE [Concomitant]
  8. HYTRIN [Concomitant]
  9. JANUVIA [Concomitant]
  10. LANTUS [Concomitant]
     Route: 058
  11. LASIX [Concomitant]
  12. METFORMIN [Concomitant]
  13. MICARDIS [Concomitant]
  14. SYMBICORT TURBUHALER [Concomitant]
     Dosage: POWDER
  15. VENTOLIN [Concomitant]

REACTIONS (3)
  - Cardiac failure congestive [Recovered/Resolved]
  - Condition aggravated [Recovered/Resolved]
  - Hypertension [Recovered/Resolved]
